FAERS Safety Report 5924571-9 (Version None)
Quarter: 2008Q3

REPORT INFORMATION
  Report Type: 
  Country: None (occurrence: None)
  Receive Date: 20080909
  Receipt Date: 20080408
  Transmission Date: 20090109
  Serious: Yes (Hospitalization)
  Sender: FDA-Public Use
  Company Number: 163-20785-08021184

PATIENT
  Age: 86 Year
  Sex: Male

DRUGS (4)
  1. THALOMID [Suspect]
     Indication: MULTIPLE MYELOMA
     Dosage: 100 MG, 1 IN 1 D, ORAL
     Route: 048
     Dates: start: 20080104, end: 20080207
  2. DEXAMETHASONE TAB [Suspect]
     Indication: DRUG USE FOR UNKNOWN INDICATION
     Dates: start: 20080104
  3. MELPHALAN (MELPHALAN) [Suspect]
     Indication: DRUG USE FOR UNKNOWN INDICATION
  4. NEURONTIN [Concomitant]

REACTIONS (5)
  - CONSTIPATION [None]
  - FATIGUE [None]
  - PNEUMONIA [None]
  - PYREXIA [None]
  - SOMNOLENCE [None]
